FAERS Safety Report 24387541 (Version 1)
Quarter: 2024Q4

REPORT INFORMATION
  Report Type: Spontaneous
  Country: US (occurrence: None)
  Receive Date: 20241001
  Receipt Date: 20241001
  Transmission Date: 20250115
  Serious: Yes (Hospitalization)
  Sender: Public
  Company Number: None

PATIENT
  Age: 69 Year
  Sex: Female

DRUGS (1)
  1. COLLAGENASE SANTYL [Suspect]
     Active Substance: COLLAGENASE CLOSTRIDIUM HISTOLYTICUM
     Dosage: DAILY TOPICAL ?
     Route: 061
     Dates: start: 20240922

REACTIONS (3)
  - Rash [None]
  - Skin burning sensation [None]
  - Peripheral swelling [None]

NARRATIVE: CASE EVENT DATE: 20240925
